FAERS Safety Report 6290681-2 (Version None)
Quarter: 2009Q3

REPORT INFORMATION
  Report Type: 
  Country: None (occurrence: None)
  Receive Date: 20090730
  Receipt Date: 20090724
  Transmission Date: 20100115
  Serious: No
  Sender: FDA-Public Use
  Company Number: US-B.I. PHARMACEUTICALS,INC./RIDGEFIELD-2009-BP-08862BP

PATIENT
  Sex: Female

DRUGS (4)
  1. SPIRIVA [Suspect]
     Indication: EMPHYSEMA
     Dosage: 18 MCG
     Route: 055
     Dates: start: 20020101
  2. COMBIVENT [Concomitant]
     Indication: EMPHYSEMA
     Route: 055
     Dates: start: 19950101
  3. COMBIVENT [Concomitant]
     Route: 055
     Dates: start: 20070101
  4. IBUPROFEN [Concomitant]
     Indication: PAIN

REACTIONS (4)
  - CATARACT [None]
  - GLAUCOMA [None]
  - INTRAOCULAR PRESSURE INCREASED [None]
  - VISUAL ACUITY REDUCED [None]
